FAERS Safety Report 20503208 (Version 1)
Quarter: 2022Q1

REPORT INFORMATION
  Report Type: Spontaneous
  Country: US (occurrence: None)
  Receive Date: 20220222
  Receipt Date: 20220222
  Transmission Date: 20220424
  Serious: Yes (Death)
  Sender: FDA-Public Use
  Company Number: None

PATIENT
  Sex: Female

DRUGS (1)
  1. CAPECITABINE [Suspect]
     Active Substance: CAPECITABINE
     Indication: Breast cancer female
     Dosage: FREQUENCY: 3 TABLETS, ON DAYS 1-14 THEN FOLLOWED BY 7 DAYS OFF
     Route: 048
     Dates: start: 20220207, end: 202202

REACTIONS (1)
  - Death [None]
